FAERS Safety Report 16694470 (Version 1)
Quarter: 2019Q3

REPORT INFORMATION
  Report Type: Spontaneous
  Country: DK (occurrence: DK)
  Receive Date: 20190812
  Receipt Date: 20190812
  Transmission Date: 20191004
  Serious: Yes (Other)
  Sender: FDA-Public Use
  Company Number: PHHY2019DK182634

PATIENT
  Age: 73 Year
  Sex: Female

DRUGS (7)
  1. VALACYCLOVIR MYLAN [Concomitant]
     Indication: HERPES VIRUS INFECTION
     Dosage: UNK
     Route: 048
  2. GLYCEROL [Concomitant]
     Active Substance: GLYCERIN
     Indication: CONSTIPATION
     Dosage: UNK
     Route: 054
  3. FEMARA [Suspect]
     Active Substance: LETROZOLE
     Indication: BREAST CANCER
     Dosage: 5 MG, QD
     Route: 048
     Dates: start: 20180125
  4. ZOVIR [Concomitant]
     Active Substance: ACYCLOVIR
     Indication: HERPES VIRUS INFECTION
     Dosage: 5 DF, QD
     Route: 003
     Dates: start: 20180501
  5. ZOLEDRONSYRE HOSPIRA [Suspect]
     Active Substance: ZOLEDRONIC ACID
     Indication: HYPERCALCAEMIA
     Dosage: 4 MG, 6 MONTHS
     Route: 042
     Dates: start: 20180411
  6. CENTYL MED KALIUMKLORID [Suspect]
     Active Substance: BENDROFLUMETHIAZIDE\POTASSIUM CHLORIDE
     Indication: DIURETIC THERAPY
     Dosage: 1 DF, QD
     Route: 048
     Dates: start: 20181126
  7. RAMIPRIL HEXAL [Suspect]
     Active Substance: RAMIPRIL
     Indication: HYPERTENSION
     Dosage: 5 MG, QD
     Route: 048
     Dates: start: 20181126

REACTIONS (4)
  - Sudden hearing loss [Not Recovered/Not Resolved]
  - Hyperhidrosis [Unknown]
  - Rash [Unknown]
  - Paraesthesia [Unknown]

NARRATIVE: CASE EVENT DATE: 201807
